FAERS Safety Report 8630590 (Version 7)
Quarter: 2012Q4

REPORT INFORMATION
  Report Type: Report from Study
  Country: CA (occurrence: CA)
  Receive Date: 20120622
  Receipt Date: 20121226
  Transmission Date: 20130627
  Serious: Yes (Death, Life-Threatening, Hospitalization, Disabling, Other)
  Sender: FDA-Public Use
  Company Number: CA-JNJFOC-20120500887

PATIENT
  Age: 70 Year
  Sex: Male
  Weight: 65 kg

DRUGS (5)
  1. ABIRATERONE ACETATE [Suspect]
     Indication: PROSTATE CANCER METASTATIC
     Route: 048
     Dates: start: 20120427, end: 20120429
  2. ABIRATERONE ACETATE [Suspect]
     Indication: PROSTATE CANCER METASTATIC
     Route: 048
     Dates: start: 20120416, end: 20120423
  3. PREDNISONE [Suspect]
     Indication: PROSTATE CANCER METASTATIC
     Route: 048
     Dates: start: 20120402
  4. PHOSPHATE [Concomitant]
     Indication: HYPOPHOSPHATAEMIA
     Route: 065
     Dates: start: 20120402, end: 20120419
  5. PAIN MEDICATION [Concomitant]
     Indication: PAIN
     Route: 065

REACTIONS (5)
  - Neutropenia [Recovered/Resolved]
  - Platelet count decreased [Recovering/Resolving]
  - Altered state of consciousness [Not Recovered/Not Resolved]
  - Altered state of consciousness [Recovered/Resolved]
  - Death [Fatal]
